FAERS Safety Report 18291221 (Version 3)
Quarter: 2021Q3

REPORT INFORMATION
  Report Type: Spontaneous
  Country: US (occurrence: US)
  Receive Date: 20200921
  Receipt Date: 20210806
  Transmission Date: 20211014
  Serious: Yes (Death, Other)
  Sender: FDA-Public Use
  Company Number: US-SA-2020SA254098

PATIENT
  Sex: Female

DRUGS (7)
  1. ZOFRAN [Concomitant]
     Active Substance: ONDANSETRON HYDROCHLORIDE
     Indication: VOMITING
  2. POTASSIUM CHLORIDE. [Concomitant]
     Active Substance: POTASSIUM CHLORIDE
     Route: 048
  3. LOSARTAN. [Concomitant]
     Active Substance: LOSARTAN
     Route: 048
  4. OXYCODONE [Concomitant]
     Active Substance: OXYCODONE
     Route: 048
  5. ZANTAC [Suspect]
     Active Substance: RANITIDINE HYDROCHLORIDE
     Dosage: UNK
     Dates: start: 2015, end: 2019
  6. COLESTIPOL [Concomitant]
     Active Substance: COLESTIPOL
     Dosage: UNK UNK, HS
     Route: 048
  7. ZOFRAN [Concomitant]
     Active Substance: ONDANSETRON HYDROCHLORIDE
     Indication: NAUSEA
     Dosage: UNK UNK, PRN (EVERY 8 HOURS AS NEEDED)

REACTIONS (4)
  - Mental disorder [Unknown]
  - Injury [Unknown]
  - Pain [Unknown]
  - Pancreatic carcinoma metastatic [Fatal]

NARRATIVE: CASE EVENT DATE: 2017
